FAERS Safety Report 7326506-3 (Version None)
Quarter: 2011Q1

REPORT INFORMATION
  Report Type: 
  Country: None (occurrence: None)
  Receive Date: 20110302
  Receipt Date: 20110223
  Transmission Date: 20110831
  Serious: Yes (Death)
  Sender: FDA-Public Use
  Company Number: NL-MEDIMMUNE-MEDI-0012706

PATIENT
  Sex: Female
  Weight: 10.5 kg

DRUGS (1)
  1. SYNAGIS [Suspect]
     Indication: CARDIAC DISORDER
     Route: 030

REACTIONS (1)
  - DEATH [None]
